FAERS Safety Report 5193502-4 (Version None)
Quarter: 2006Q4

REPORT INFORMATION
  Report Type: 
  Country: None (occurrence: None)
  Receive Date: 20061228
  Receipt Date: 20060615
  Transmission Date: 20070319
  Serious: No
  Sender: FDA-Public Use
  Company Number: US-GLAXOSMITHKLINE-A0609136A

PATIENT
  Sex: Female

DRUGS (3)
  1. FLONASE [Suspect]
     Dosage: 2PUFF PER DAY
     Route: 045
     Dates: end: 20060401
  2. COMBIVENT [Concomitant]
  3. SINGULAIR [Concomitant]

REACTIONS (5)
  - AGEUSIA [None]
  - CHEST PAIN [None]
  - COUGH [None]
  - DYSPHONIA [None]
  - WEIGHT DECREASED [None]
